FAERS Safety Report 8491199-9 (Version None)
Quarter: 2012Q3

REPORT INFORMATION
  Report Type: 
  Country: None (occurrence: None)
  Receive Date: 20120706
  Receipt Date: 20120629
  Transmission Date: 20120928
  Serious: Yes (Hospitalization, Other)
  Sender: FDA-Public Use
  Company Number: DE-ABBOTT-11P-062-0885312-00

PATIENT
  Sex: Female
  Weight: 53 kg

DRUGS (2)
  1. HUMIRA [Suspect]
     Dates: start: 20120119
  2. HUMIRA [Suspect]
     Indication: JUVENILE ARTHRITIS
     Route: 058
     Dates: start: 20090301, end: 20111001

REACTIONS (6)
  - SWELLING [None]
  - IMPAIRED HEALING [None]
  - POST PROCEDURAL INFECTION [None]
  - WOUND SECRETION [None]
  - WOUND COMPLICATION [None]
  - OSTEOARTHRITIS [None]
